FAERS Safety Report 4344723-1 (Version None)
Quarter: 2004Q2

REPORT INFORMATION
  Report Type: 
  Country: None (occurrence: None)
  Receive Date: 20040420
  Receipt Date: 20040407
  Transmission Date: 20050107
  Serious: Yes (Other)
  Sender: FDA-Public Use
  Company Number: 2004207952BR

PATIENT
  Age: 31 Year
  Sex: Female

DRUGS (3)
  1. BEXTRA [Suspect]
     Indication: POST PROCEDURAL PAIN
     Dosage: ORAL
     Route: 048
     Dates: start: 20040323, end: 20040323
  2. CEPHALEXIN [Concomitant]
  3. ACETAMINOPHEN [Concomitant]

REACTIONS (4)
  - CHEST PAIN [None]
  - MALAISE [None]
  - POST PROCEDURAL COMPLICATION [None]
  - SUFFOCATION FEELING [None]
